FAERS Safety Report 5482799-9 (Version None)
Quarter: 2007Q4

REPORT INFORMATION
  Report Type: 
  Country: None (occurrence: None)
  Receive Date: 20071011
  Receipt Date: 20070928
  Transmission Date: 20080405
  Serious: Yes (Other)
  Sender: FDA-Public Use
  Company Number: US-PFIZER INC-2007082486

PATIENT
  Sex: Male
  Weight: 65.909 kg

DRUGS (2)
  1. CHANTIX [Suspect]
     Indication: SMOKING CESSATION THERAPY
     Dates: start: 20070601, end: 20070801
  2. TRIZIVIR [Concomitant]
     Indication: HIV TEST POSITIVE

REACTIONS (4)
  - AFFECT LABILITY [None]
  - AGGRESSION [None]
  - ANGER [None]
  - IRRITABILITY [None]
